FAERS Safety Report 4361144-6 (Version None)
Quarter: 2004Q2

REPORT INFORMATION
  Report Type: 
  Country: None (occurrence: None)
  Receive Date: 20040511
  Receipt Date: 20031112
  Transmission Date: 20050107
  Serious: Yes (Hospitalization)
  Sender: FDA-Public Use
  Company Number: USA031152414

PATIENT
  Age: 58 Year
  Sex: Female

DRUGS (1)
  1. PROZAC [Suspect]
     Indication: TRICHOTILLOMANIA
     Dosage: 60 MG

REACTIONS (4)
  - DEPRESSION [None]
  - DRUG INEFFECTIVE [None]
  - HEART RATE DECREASED [None]
  - MANIA [None]
